FAERS Safety Report 8302746-1 (Version None)
Quarter: 2012Q2

REPORT INFORMATION
  Report Type: 
  Country: None (occurrence: None)
  Receive Date: 20120420
  Receipt Date: 20120412
  Transmission Date: 20120825
  Serious: Yes (Hospitalization)
  Sender: FDA-Public Use
  Company Number: BE-ELI_LILLY_AND_COMPANY-BE201203003130

PATIENT
  Sex: Male
  Weight: 90 kg

DRUGS (9)
  1. BYETTA [Suspect]
     Indication: TYPE 2 DIABETES MELLITUS
     Dosage: 10 UG, BID
     Route: 058
     Dates: start: 20090901, end: 20110601
  2. ASPIRIN [Concomitant]
     Dosage: 80 DF, QD
  3. ANAFRANIL [Concomitant]
     Dosage: 25 DF, QID
  4. GLURENORM [Concomitant]
     Dosage: UNK, TID
  5. SIMVASTATIN [Concomitant]
     Dosage: 40 DF, BID
  6. DEPAKENE [Concomitant]
     Dosage: 500 DF, TID
  7. LISINOPRIL [Concomitant]
     Dosage: 5 DF, QD
  8. BYETTA [Suspect]
     Dosage: UNK
     Dates: start: 20110701
  9. METFORMIN HCL [Concomitant]
     Dosage: 850 DF, TID

REACTIONS (4)
  - WEIGHT DECREASED [None]
  - RENAL CANCER [None]
  - DECREASED APPETITE [None]
  - DEPRESSION [None]
